FAERS Safety Report 9412129 (Version 1)
Quarter: 2013Q3

REPORT INFORMATION
  Report Type: Spontaneous
  Country: US (occurrence: None)
  Receive Date: 20130719
  Receipt Date: 20130719
  Transmission Date: 20140515
  Serious: Yes (Hospitalization)
  Sender: FDA-Public Use
  Company Number: None

PATIENT
  Age: 25 None
  Sex: Female
  Weight: 56.8 kg

DRUGS (2)
  1. PHENTERMINE [Suspect]
     Dates: start: 20130619
  2. ADDERALL [Suspect]
     Indication: ATTENTION DEFICIT/HYPERACTIVITY DISORDER
     Dates: start: 20130619

REACTIONS (6)
  - Palpitations [None]
  - Dyspnoea [None]
  - Anxiety [None]
  - Muscle spasms [None]
  - Restlessness [None]
  - Dizziness [None]
